FAERS Safety Report 8797737 (Version 2)
Quarter: 2012Q4

REPORT INFORMATION
  Report Type: 
  Country: US (occurrence: US)
  Receive Date: 20120920
  Receipt Date: 20121008
  Transmission Date: 20130627
  Serious: No
  Sender: FDA-Public Use
  Company Number: US-009507513-1208USA008280

PATIENT
  Sex: Female

DRUGS (4)
  1. PEGINTRON [Suspect]
     Indication: HEPATITIS C
     Dosage: UNK
     Dates: start: 20120716
  2. REBETOL [Suspect]
     Indication: HEPATITIS C
     Dosage: UNK 5, qd
     Dates: start: 20120716
  3. REBETOL [Suspect]
     Dosage: 3UNK
  4. VICTRELIS [Suspect]
     Indication: HEPATITIS C
     Dosage: UNK
     Dates: start: 20120813

REACTIONS (14)
  - Malaise [Unknown]
  - Vaginal discharge [Unknown]
  - Vaginal odour [Unknown]
  - Abdominal pain [Unknown]
  - Bowel movement irregularity [Unknown]
  - Pollakiuria [Unknown]
  - Nausea [Unknown]
  - Feeling cold [Unknown]
  - Headache [Unknown]
  - Arthralgia [Unknown]
  - Pain [Unknown]
  - Irritability [Unknown]
  - Rash [Unknown]
  - Asthenia [Unknown]
